FAERS Safety Report 10069960 (Version 1)
Quarter: 2014Q2

REPORT INFORMATION
  Report Type: Spontaneous
  Country: ES (occurrence: ES)
  Receive Date: 20140410
  Receipt Date: 20140410
  Transmission Date: 20141212
  Serious: Yes (Life-Threatening, Other)
  Sender: FDA-Public Use
  Company Number: ES-ASTRAZENECA-2014SE24583

PATIENT
  Age: 40 Year
  Sex: Female

DRUGS (1)
  1. NEXIUM [Suspect]
     Indication: PROPHYLAXIS AGAINST GASTROINTESTINAL ULCER
     Route: 042
     Dates: start: 20140321, end: 20140322

REACTIONS (7)
  - Coma [Recovered/Resolved]
  - Cyanosis [Unknown]
  - Muscle rigidity [Unknown]
  - Anaphylactic shock [Recovered/Resolved]
  - Paraesthesia [Unknown]
  - Erythema [Unknown]
  - Piloerection [Unknown]
